FAERS Safety Report 24396662 (Version 1)
Quarter: 2024Q4

REPORT INFORMATION
  Report Type: Spontaneous
  Country: DK (occurrence: DK)
  Receive Date: 20241004
  Receipt Date: 20241004
  Transmission Date: 20250114
  Serious: Yes (Life-Threatening, Hospitalization, Other)
  Sender: AMGEN
  Company Number: DK-AMGEN-DNKSP2024192463

PATIENT
  Sex: Male

DRUGS (2)
  1. ADALIMUMAB [Suspect]
     Active Substance: ADALIMUMAB
     Indication: Rheumatoid arthritis
     Dosage: UNK
     Route: 065
  2. METHOTREXATE [Concomitant]
     Active Substance: METHOTREXATE

REACTIONS (5)
  - Disseminated tuberculosis [Recovering/Resolving]
  - Atypical pneumonia [Recovering/Resolving]
  - Drug-induced liver injury [Unknown]
  - Normochromic normocytic anaemia [Unknown]
  - Paraesthesia [Unknown]
